FAERS Safety Report 24264968 (Version 1)
Quarter: 2024Q3

REPORT INFORMATION
  Report Type: Spontaneous
  Country: US (occurrence: None)
  Receive Date: 20240828
  Receipt Date: 20240828
  Transmission Date: 20241017
  Serious: Yes (Other)
  Sender: Public
  Company Number: None

PATIENT
  Age: 66 Year
  Sex: Female
  Weight: 65.25 kg

DRUGS (4)
  1. OLOPATADINE HYDROCHLORIDE [Suspect]
     Active Substance: OLOPATADINE HYDROCHLORIDE
     Indication: Multiple allergies
     Dosage: OTHER QUANTITY : 1 DROP(S);?FREQUENCY : DAILY;?
     Route: 047
     Dates: start: 20240826, end: 20240826
  2. balance of nature [Concomitant]
  3. VITAMIN D3 [Concomitant]
     Active Substance: CHOLECALCIFEROL
  4. ZINC [Concomitant]
     Active Substance: ZINC

REACTIONS (4)
  - Photophobia [None]
  - Mydriasis [None]
  - Vision blurred [None]
  - Therapy cessation [None]

NARRATIVE: CASE EVENT DATE: 20240826
